FAERS Safety Report 5219068-8 (Version None)
Quarter: 2007Q1

REPORT INFORMATION
  Report Type: 
  Country: None (occurrence: None)
  Receive Date: 20070124
  Receipt Date: 20070124
  Transmission Date: 20070707
  Serious: Yes (Hospitalization)
  Sender: FDA-Public Use
  Company Number: None

PATIENT
  Sex: Male
  Weight: 87 kg

DRUGS (4)
  1. BEVACIZUMAB (RHUMAB VEGF) [Suspect]
     Dosage: 870 MG
     Dates: end: 20070110
  2. LEUCOVORIN CALCIUM [Suspect]
     Dosage: 1616 MG
     Dates: end: 20070110
  3. ELOXATIN [Suspect]
     Dosage: 344 MG
     Dates: end: 20070110
  4. FLUOROURACIL [Suspect]
     Dosage: 11312 MG
     Dates: end: 20070110

REACTIONS (5)
  - APHASIA [None]
  - ASTHENIA [None]
  - DYSARTHRIA [None]
  - FACIAL PALSY [None]
  - ISCHAEMIC CEREBRAL INFARCTION [None]
